FAERS Safety Report 23976387 (Version 1)
Quarter: 2024Q2

REPORT INFORMATION
  Report Type: Report from Study
  Country: CN (occurrence: CN)
  Receive Date: 20240614
  Receipt Date: 20240614
  Transmission Date: 20240716
  Serious: Yes (Other)
  Sender: FDA-Public Use
  Company Number: CN-TAKEDA-2023TUS069098

PATIENT
  Age: 68 Year
  Sex: Female
  Weight: 55 kg

DRUGS (5)
  1. BRENTUXIMAB VEDOTIN [Suspect]
     Active Substance: BRENTUXIMAB VEDOTIN
     Indication: Non-Hodgkin^s lymphoma
     Dosage: 100 MILLIGRAM, Q3WEEKS
     Route: 041
     Dates: start: 20230707
  2. BRENTUXIMAB VEDOTIN [Suspect]
     Active Substance: BRENTUXIMAB VEDOTIN
     Dosage: 88 MILLIGRAM, Q3WEEKS
     Route: 041
     Dates: start: 20231008
  3. CYCLOPHOSPHAMIDE [Suspect]
     Active Substance: CYCLOPHOSPHAMIDE
     Indication: Lymphoma
     Dosage: 1197 MILLIGRAM, QD
     Route: 042
     Dates: start: 20230708, end: 20230708
  4. PREDNISONE ACETATE [Concomitant]
     Active Substance: PREDNISONE ACETATE
     Indication: Lymphoma
     Dosage: 100 MILLIGRAM, QD
     Route: 048
     Dates: start: 20230708, end: 20230712
  5. EPIRUBICIN HYDROCHLORIDE [Concomitant]
     Active Substance: EPIRUBICIN HYDROCHLORIDE
     Indication: Lymphoma
     Dosage: 110 MILLIGRAM, QD
     Route: 042
     Dates: start: 20230708, end: 20230708

REACTIONS (11)
  - Myelosuppression [Recovered/Resolved]
  - Gamma-glutamyltransferase increased [Not Recovered/Not Resolved]
  - Hypoproteinaemia [Not Recovered/Not Resolved]
  - Hyperuricaemia [Not Recovered/Not Resolved]
  - Hyponatraemia [Recovered/Resolved]
  - Low density lipoprotein increased [Not Recovered/Not Resolved]
  - Blood alkaline phosphatase increased [Not Recovered/Not Resolved]
  - Bile acids increased [Not Recovered/Not Resolved]
  - Aspartate aminotransferase increased [Not Recovered/Not Resolved]
  - Platelet count decreased [Not Recovered/Not Resolved]
  - Off label use [Unknown]

NARRATIVE: CASE EVENT DATE: 20230707
